FAERS Safety Report 9842367 (Version 2)
Quarter: 2014Q1

REPORT INFORMATION
  Report Type: Spontaneous
  Country: US (occurrence: US)
  Receive Date: 20140124
  Receipt Date: 20140213
  Transmission Date: 20141002
  Serious: Yes (Other)
  Sender: FDA-Public Use
  Company Number: US-B.I. PHARMACEUTICALS,INC./RIDGEFIELD-2014-BI-02660PF

PATIENT
  Age: 77 Year
  Sex: Female
  Weight: 48.99 kg

DRUGS (3)
  1. SPIRIVA [Suspect]
     Indication: PRODUCT USED FOR UNKNOWN INDICATION
  2. LIPITOR [Suspect]
     Indication: BLOOD CHOLESTEROL
     Dosage: 40 MG
  3. VERAPAMIL HYDROCHLORIDE [Concomitant]
     Dosage: 120 MG

REACTIONS (1)
  - Lung neoplasm malignant [Unknown]
